FAERS Safety Report 9361984 (Version 1)
Quarter: 2013Q2

REPORT INFORMATION
  Report Type: Spontaneous
  Country: FR (occurrence: FR)
  Receive Date: 20130621
  Receipt Date: 20130621
  Transmission Date: 20140414
  Serious: Yes (Hospitalization)
  Sender: FDA-Public Use
  Company Number: FR-PFIZER INC-2013180209

PATIENT
  Age: 70 Year
  Sex: Male

DRUGS (11)
  1. DALACINE [Suspect]
     Indication: STAPHYLOCOCCAL SEPSIS
     Dosage: 900 MG, 3X/DAY
     Route: 048
     Dates: start: 20130419
  2. DALACINE [Suspect]
     Indication: DEVICE RELATED INFECTION
  3. TAVANIC [Suspect]
     Indication: STAPHYLOCOCCAL SEPSIS
     Dosage: 750 MG, DAY
     Route: 048
     Dates: start: 20130419, end: 20130524
  4. TAVANIC [Suspect]
     Indication: DEVICE RELATED INFECTION
  5. CALCIPARIN [Suspect]
     Indication: POSTOPERATIVE CARE
     Dosage: 0.2 ML, 3X/DAY
     Dates: start: 20130419, end: 20130523
  6. LANTUS [Concomitant]
     Dosage: 22 IU, IN THE EVENING
  7. NOVONORM [Concomitant]
     Dosage: 2 MG, 3X/DAY
  8. INEXIUM [Concomitant]
     Dosage: 20 MG, A DAY
  9. LASILIX [Concomitant]
     Dosage: 40 MG, 2X/DAY
  10. TOPALGIC [Concomitant]
     Indication: PAIN
     Dosage: 50 MG, 4X/DAY
  11. FUNGIZONE [Concomitant]
     Dosage: 1 SPOON/DAY

REACTIONS (1)
  - Pancytopenia [Recovered/Resolved]
